FAERS Safety Report 8760931 (Version 3)
Quarter: 2012Q4

REPORT INFORMATION
  Report Type: 
  Country: LB (occurrence: LB)
  Receive Date: 20120830
  Receipt Date: 20121005
  Transmission Date: 20130627
  Serious: Yes (Death, Hospitalization, Other)
  Sender: FDA-Public Use
  Company Number: PHHY2012LB066139

PATIENT
  Age: 48 None
  Sex: Male

DRUGS (11)
  1. TASIGNA [Suspect]
     Indication: CHRONIC MYELOID LEUKAEMIA
     Dosage: 800 mg per day
     Route: 048
     Dates: start: 20120725
  2. OSPEN [Suspect]
     Dosage: 1 DF, QD
     Route: 048
  3. DEXAMETHASONE SANDOZ [Suspect]
     Dosage: 1 DF, Q12H
     Route: 048
  4. VOLTAREN [Suspect]
  5. OLFEN [Suspect]
     Dosage: 1 DF, Q12H
     Route: 048
  6. LANZOR [Suspect]
     Dosage: 1 DF, QD
  7. ZYLORIC [Concomitant]
     Dosage: Half tablet for every 12 hours
     Route: 048
     Dates: start: 201004
  8. COAPROVEL [Concomitant]
     Dosage: 1 DF, Q12H
     Route: 048
     Dates: start: 201205
  9. CONCOR [Concomitant]
     Dosage: 1 DF, QD
     Route: 048
     Dates: start: 201205
  10. INSULATARD [Concomitant]
     Indication: DIABETES MELLITUS
     Dosage: 12 U, Q12H
     Dates: start: 201205
  11. TRAMAL [Concomitant]
     Indication: PYREXIA
     Route: 048
     Dates: start: 201208

REACTIONS (10)
  - Thrombocytopenia [Fatal]
  - Leukopenia [Fatal]
  - Anaemia [Fatal]
  - Pyrexia [Not Recovered/Not Resolved]
  - Haemorrhoids [Unknown]
  - Splenomegaly [Unknown]
  - Arthralgia [Unknown]
  - Hepatomegaly [Unknown]
  - Tachycardia [Recovering/Resolving]
  - Dyspnoea [Recovering/Resolving]
